FAERS Safety Report 8251444-1 (Version None)
Quarter: 2012Q2

REPORT INFORMATION
  Report Type: 
  Country: None (occurrence: None)
  Receive Date: 20120402
  Receipt Date: 20120323
  Transmission Date: 20120825
  Serious: Yes (Hospitalization, Other)
  Sender: FDA-Public Use
  Company Number: US-ABBOTT-12P-163-0918578-00

PATIENT
  Sex: Female
  Weight: 83.536 kg

DRUGS (9)
  1. OMEPRAZOLE [Concomitant]
     Indication: DYSPEPSIA
     Dates: start: 20050101
  2. ESCITALOPRAM OXALATE [Concomitant]
     Dates: start: 20091201
  3. ESCITALOPRAM OXALATE [Concomitant]
     Indication: ANXIETY
     Dates: start: 20080121, end: 20090401
  4. TELMISARTAN [Concomitant]
     Indication: HYPERTENSION
     Dates: start: 20100308
  5. BALSALAZIDE DISODIUM [Concomitant]
     Indication: COLITIS ULCERATIVE
     Dates: start: 20100421
  6. OLMESARTAN MEDOXOMIL [Concomitant]
     Indication: BLOOD PRESSURE INCREASED
     Dates: start: 20091201
  7. HUMIRA [Suspect]
     Indication: COLITIS ULCERATIVE
     Route: 058
     Dates: start: 20080822
  8. ACETAMINOPHEN [Concomitant]
     Indication: HEADACHE
     Dates: start: 19900101
  9. CENTRUM [Concomitant]
     Indication: MEDICAL DIET
     Dates: start: 20070901

REACTIONS (1)
  - ENDOMETRIAL CANCER [None]
